FAERS Safety Report 6475221-7 (Version None)
Quarter: 2009Q4

REPORT INFORMATION
  Report Type: 
  Country: None (occurrence: None)
  Receive Date: 20091204
  Receipt Date: 20090511
  Transmission Date: 20100525
  Serious: Yes (Hospitalization)
  Sender: FDA-Public Use
  Company Number: US-ELI_LILLY_AND_COMPANY-US200903006634

PATIENT
  Sex: Female
  Weight: 114.74 kg

DRUGS (15)
  1. BYETTA [Suspect]
     Indication: TYPE 2 DIABETES MELLITUS
     Dosage: 5 UG, 2/D
     Route: 058
     Dates: start: 20090310
  2. GLIMEPIRIDE [Concomitant]
     Dosage: 4 MG, 2/D
     Route: 048
  3. DETROL LA [Concomitant]
     Dosage: 4 MG, EACH MORNING
     Route: 048
  4. FUROSEMIDE [Concomitant]
     Dosage: UNK, EACH MORNING
  5. LYRICA [Concomitant]
     Dosage: 75 MG, 3/D
     Route: 048
  6. TRAZODONE HCL [Concomitant]
     Dosage: 50 MG, EACH EVENING
     Route: 048
  7. NEXIUM [Concomitant]
     Dosage: 40 MG, EACH EVENING
  8. METFORMIN HCL [Concomitant]
     Dosage: 1000 MG, 2/D
     Route: 048
  9. VYTORIN [Concomitant]
     Dosage: UNK, EACH EVENING
     Route: 048
  10. ACETAMINOPHEN AND HYDROCODONE BITARTRATE [Concomitant]
     Dosage: UNK, AS NEEDED
     Route: 048
  11. HYDROXYZINE [Concomitant]
     Dosage: 25 MG, AS NEEDED
     Route: 048
  12. FISH [Concomitant]
     Dosage: 1000 MG, EACH MORNING
     Route: 048
  13. MULTI-VITAMIN [Concomitant]
     Dosage: UNK, EACH MORNING
     Route: 048
  14. MAGNESIUM OXIDE [Concomitant]
     Dosage: 400 MG, DAILY (1/D)
     Route: 048
  15. HYOSCYAMINE [Concomitant]
     Dosage: 0.125 MG, AS NEEDED
     Route: 060

REACTIONS (1)
  - DIVERTICULITIS [None]
